FAERS Safety Report 7131600-6 (Version None)
Quarter: 2010Q4

REPORT INFORMATION
  Report Type: 
  Country: None (occurrence: None)
  Receive Date: 20101201
  Receipt Date: 20101117
  Transmission Date: 20110411
  Serious: Yes (Other)
  Sender: FDA-Public Use
  Company Number: US-AMGEN-USASP2010005610

PATIENT

DRUGS (1)
  1. NPLATE [Suspect]
     Indication: IDIOPATHIC THROMBOCYTOPENIC PURPURA
     Dosage: 0.5 A?G/KG, UNK
     Dates: start: 20081010, end: 20100706

REACTIONS (3)
  - ANEURYSM REPAIR [None]
  - MULTIMORBIDITY [None]
  - PLATELET COUNT INCREASED [None]
